FAERS Safety Report 23259935 (Version 1)
Quarter: 2023Q4

REPORT INFORMATION
  Report Type: Spontaneous
  Country: US (occurrence: US)
  Receive Date: 20231204
  Receipt Date: 20231204
  Transmission Date: 20240109
  Serious: Yes (Death, Other)
  Sender: FDA-Public Use
  Company Number: US-AMGEN-USASP2023211902

PATIENT
  Sex: Male

DRUGS (2)
  1. BEVACIZUMAB [Suspect]
     Active Substance: BEVACIZUMAB
     Indication: Hepatocellular carcinoma
     Dosage: UNK, 3 CYCLES
     Route: 065
     Dates: start: 202006
  2. ATEZOLIZUMAB [Concomitant]
     Active Substance: ATEZOLIZUMAB
     Indication: Hepatocellular carcinoma
     Dosage: UNK, 3 CYCLES
     Route: 065
     Dates: start: 202006

REACTIONS (4)
  - Hepatocellular carcinoma [Fatal]
  - Inguinal hernia [Unknown]
  - Cardiac disorder [Unknown]
  - Off label use [Unknown]
